FAERS Safety Report 16209707 (Version 2)
Quarter: 2019Q2

REPORT INFORMATION
  Report Type: Spontaneous
  Country: DE (occurrence: DE)
  Receive Date: 20190417
  Receipt Date: 20190430
  Transmission Date: 20190711
  Serious: Yes (Death)
  Sender: FDA-Public Use
  Company Number: DE-CELGENEUS-DEU-20190404626

PATIENT
  Age: 80 Year
  Sex: Female
  Weight: 78 kg

DRUGS (70)
  1. REVLIMID [Suspect]
     Active Substance: LENALIDOMIDE
     Dosage: DOSE NOT PROVIDED
     Route: 048
     Dates: start: 20190130
  2. NOVAMINSULFON LICHTENSTEIN [Concomitant]
     Active Substance: METAMIZOLE SODIUM
     Indication: PRODUCT USED FOR UNKNOWN INDICATION
     Dosage: DOSE NOT PROVIDED
     Route: 065
     Dates: start: 20190107
  3. NOVAMINSULFON LICHTENSTEIN [Concomitant]
     Active Substance: METAMIZOLE SODIUM
     Dosage: DOSE NOT PROVIDED
     Route: 065
     Dates: start: 20190115
  4. NOVAMINSULFON LICHTENSTEIN [Concomitant]
     Active Substance: METAMIZOLE SODIUM
     Dosage: DOSE NOT PROVIDED
     Route: 065
     Dates: start: 20190402
  5. LAXANS-RATIOPHARM PICO [Concomitant]
     Dosage: DOSE NOT PROVIDED
     Route: 065
     Dates: start: 20190207
  6. XGEVA [Concomitant]
     Active Substance: DENOSUMAB
     Indication: PRODUCT USED FOR UNKNOWN INDICATION
     Dosage: DOSE NOT PROVIDED
     Route: 065
     Dates: start: 20190222
  7. DEXA OPTHAL [Concomitant]
     Dosage: DOSE NOT PROVIDED
     Route: 047
     Dates: start: 20190307
  8. CELECOXIB. [Concomitant]
     Active Substance: CELECOXIB
     Indication: PRODUCT USED FOR UNKNOWN INDICATION
     Dosage: DOSE NOT PROVIDED
     Route: 065
     Dates: start: 20190319
  9. NOVAMINSULFON LICHTENSTEIN [Concomitant]
     Active Substance: METAMIZOLE SODIUM
     Dosage: DOSE NOT PROVIDED
     Route: 065
     Dates: start: 20190312
  10. OXYCODONE HYDROCHLORIDE. [Concomitant]
     Active Substance: OXYCODONE HYDROCHLORIDE
     Dosage: DOSE NOT PROVIDED
     Route: 065
     Dates: start: 20190212
  11. KALINOR [Concomitant]
     Dosage: DOSE NOT PROVIDED
     Route: 065
     Dates: start: 20190221
  12. KALINOR [Concomitant]
     Dosage: DOSE NOT PROVIDED
     Route: 065
     Dates: start: 20190314
  13. ZOLPIDEM [Concomitant]
     Active Substance: ZOLPIDEM\ZOLPIDEM TARTRATE
     Dosage: DOSE NOT PROVIDED
     Route: 065
     Dates: start: 20190402
  14. ALENDRONIC ACID [Concomitant]
     Active Substance: ALENDRONIC ACID
     Indication: PRODUCT USED FOR UNKNOWN INDICATION
     Dosage: DOSE NOT PROVIDED
     Route: 065
     Dates: start: 20190219
  15. DOMPERIDON ABZ [Concomitant]
     Indication: PRODUCT USED FOR UNKNOWN INDICATION
     Dosage: DOSE NOT PROVIDED
     Route: 065
     Dates: start: 20190405
  16. CLEXANE [Concomitant]
     Active Substance: ENOXAPARIN SODIUM
     Indication: PRODUCT USED FOR UNKNOWN INDICATION
     Dosage: DOSE NOT PROVIDED
     Route: 065
     Dates: start: 20190107
  17. CLEXANE [Concomitant]
     Active Substance: ENOXAPARIN SODIUM
     Dosage: DOSE NOT PROVIDED
     Route: 065
     Dates: start: 20190319
  18. LAXANS-RATIOPHARM PICO [Concomitant]
     Indication: PRODUCT USED FOR UNKNOWN INDICATION
     Dosage: DOSE NOT PROVIDED
     Route: 065
     Dates: start: 20190108
  19. LAXANS-RATIOPHARM PICO [Concomitant]
     Dosage: DOSE NOT PROVIDED
     Route: 065
     Dates: start: 20190314
  20. OCTAGAM IMMUNE GLOBULIN (HUMAN) [Concomitant]
     Active Substance: HUMAN IMMUNOGLOBULIN G
     Indication: PRODUCT USED FOR UNKNOWN INDICATION
     Dosage: DOSE NOT PROVIDED
     Route: 041
     Dates: start: 20190115
  21. KALINOR [Concomitant]
     Dosage: DOSE NOT PROVIDED
     Route: 065
     Dates: start: 20190207
  22. MOVENTIG [Concomitant]
     Active Substance: NALOXEGOL OXALATE
     Indication: PRODUCT USED FOR UNKNOWN INDICATION
     Dosage: DOSE NOT PROVIDED
     Route: 065
     Dates: start: 20190129
  23. IDEOS [Concomitant]
     Active Substance: CALCIUM CARBONATE\CHOLECALCIFEROL
     Indication: PRODUCT USED FOR UNKNOWN INDICATION
     Dosage: DOSE NOT PROVIDED
     Route: 048
     Dates: start: 20190108
  24. IDEOS [Concomitant]
     Active Substance: CALCIUM CARBONATE\CHOLECALCIFEROL
     Dosage: DOSE NOT PROVIDED
     Route: 048
     Dates: start: 20190319
  25. TORASEMID [Concomitant]
     Active Substance: TORSEMIDE
     Dosage: DOSE NOT PROVIDED
     Route: 065
     Dates: start: 20190306
  26. OCTAGAM IMMUNE GLOBULIN (HUMAN) [Concomitant]
     Active Substance: HUMAN IMMUNOGLOBULIN G
     Dosage: DOSE NOT PROVIDED
     Route: 041
     Dates: start: 20190308
  27. OCTAGAM IMMUNE GLOBULIN (HUMAN) [Concomitant]
     Active Substance: HUMAN IMMUNOGLOBULIN G
     Dosage: DOSE NOT PROVIDED
     Route: 041
     Dates: start: 20190404
  28. OXYCODONE HYDROCHLORIDE. [Concomitant]
     Active Substance: OXYCODONE HYDROCHLORIDE
     Indication: PRODUCT USED FOR UNKNOWN INDICATION
     Dosage: DOSE NOT PROVIDED
     Route: 065
     Dates: start: 20190118
  29. OXYCODONE HYDROCHLORIDE. [Concomitant]
     Active Substance: OXYCODONE HYDROCHLORIDE
     Dosage: DOSE NOT PROVIDED
     Route: 065
     Dates: start: 20190306
  30. KALINOR [Concomitant]
     Indication: PRODUCT USED FOR UNKNOWN INDICATION
     Dosage: DOSE NOT PROVIDED
     Route: 065
     Dates: start: 20190118
  31. ZOLPIDEM [Concomitant]
     Active Substance: ZOLPIDEM\ZOLPIDEM TARTRATE
     Indication: PRODUCT USED FOR UNKNOWN INDICATION
     Dosage: DOSE NOT PROVIDED
     Route: 065
     Dates: start: 20190122
  32. ZOLPIDEM [Concomitant]
     Active Substance: ZOLPIDEM\ZOLPIDEM TARTRATE
     Dosage: DOSE NOT PROVIDED
     Route: 065
     Dates: start: 20190319
  33. MOVENTIG [Concomitant]
     Active Substance: NALOXEGOL OXALATE
     Dosage: DOSE NOT PROVIDED
     Route: 065
     Dates: start: 20190305
  34. PANTOPRAZOL [Concomitant]
     Active Substance: PANTOPRAZOLE SODIUM
     Dosage: DOSE NOT PROVIDED
     Route: 065
     Dates: start: 20190319
  35. DEXA GENTAMICIN [Concomitant]
     Active Substance: DEXAMETHASONE SODIUM PHOSPHATE\GENTAMICIN SULFATE
     Indication: PRODUCT USED FOR UNKNOWN INDICATION
     Dosage: DOSE NOT PROVIDED
     Route: 047
     Dates: start: 20190219
  36. XGEVA [Concomitant]
     Active Substance: DENOSUMAB
     Dosage: DOSE NOT PROVIDED
     Route: 065
     Dates: start: 20190320
  37. CLEXANE [Concomitant]
     Active Substance: ENOXAPARIN SODIUM
     Dosage: DOSE NOT PROVIDED
     Route: 065
     Dates: start: 20190305
  38. NOVAMINSULFON LICHTENSTEIN [Concomitant]
     Active Substance: METAMIZOLE SODIUM
     Dosage: DOSE NOT PROVIDED
     Route: 065
     Dates: start: 20190226
  39. TORASEMID [Concomitant]
     Active Substance: TORSEMIDE
     Indication: PRODUCT USED FOR UNKNOWN INDICATION
     Dosage: DOSE NOT PROVIDED
     Route: 065
     Dates: start: 20190108
  40. TORASEMID [Concomitant]
     Active Substance: TORSEMIDE
     Dosage: DOSE NOT PROVIDED
     Route: 065
     Dates: start: 20190207
  41. ZOLPIDEM [Concomitant]
     Active Substance: ZOLPIDEM\ZOLPIDEM TARTRATE
     Dosage: DOSE NOT PROVIDED
     Route: 065
     Dates: start: 20190305
  42. DEXAMETHASONE. [Concomitant]
     Active Substance: DEXAMETHASONE
     Indication: PRODUCT USED FOR UNKNOWN INDICATION
     Dosage: DOSE NOT PROVIDED
     Route: 065
     Dates: start: 20190221
  43. REVLIMID [Suspect]
     Active Substance: LENALIDOMIDE
     Indication: PLASMA CELL MYELOMA
     Route: 048
     Dates: start: 20171228
  44. REVLIMID [Suspect]
     Active Substance: LENALIDOMIDE
     Dosage: DOSE NOT PROVIDED
     Route: 048
     Dates: start: 20190108
  45. REVLIMID [Suspect]
     Active Substance: LENALIDOMIDE
     Dosage: DOSE NOT PROVIDED
     Route: 048
     Dates: start: 20190221
  46. REVLIMID [Suspect]
     Active Substance: LENALIDOMIDE
     Dosage: DOSE NOT PROVIDED
     Route: 048
     Dates: start: 20190404
  47. CLEXANE [Concomitant]
     Active Substance: ENOXAPARIN SODIUM
     Dosage: DOSE NOT PROVIDED
     Route: 065
     Dates: start: 20190212
  48. ENALAPRIL [Concomitant]
     Active Substance: ENALAPRIL
     Dosage: DOSE NOT PROVIDED
     Route: 065
     Dates: start: 20190312
  49. OCTAGAM IMMUNE GLOBULIN (HUMAN) [Concomitant]
     Active Substance: HUMAN IMMUNOGLOBULIN G
     Dosage: DOSE NOT PROVIDED
     Route: 041
     Dates: start: 20190213
  50. ZOLPIDEM [Concomitant]
     Active Substance: ZOLPIDEM\ZOLPIDEM TARTRATE
     Dosage: DOSE NOT PROVIDED
     Route: 065
     Dates: start: 20190212
  51. ZOMETA [Concomitant]
     Active Substance: ZOLEDRONIC ACID
     Indication: PRODUCT USED FOR UNKNOWN INDICATION
     Dosage: DOSE NOT PROVIDED
     Route: 065
     Dates: start: 20190128
  52. PANTOPRAZOL [Concomitant]
     Active Substance: PANTOPRAZOLE SODIUM
     Indication: PRODUCT USED FOR UNKNOWN INDICATION
     Dosage: DOSE NOT PROVIDED
     Route: 065
     Dates: start: 20190212
  53. ALENDRONIC ACID [Concomitant]
     Active Substance: ALENDRONIC ACID
     Dosage: DOSE NOT PROVIDED
     Route: 065
     Dates: start: 20190306
  54. DULOXETINE. [Concomitant]
     Active Substance: DULOXETINE
     Indication: PRODUCT USED FOR UNKNOWN INDICATION
     Dosage: DOSE NOT PROVIDED
     Route: 065
     Dates: start: 20190226
  55. CLEXANE [Concomitant]
     Active Substance: ENOXAPARIN SODIUM
     Dosage: DOSE NOT PROVIDED
     Route: 065
     Dates: start: 20190125
  56. NOVAMINSULFON LICHTENSTEIN [Concomitant]
     Active Substance: METAMIZOLE SODIUM
     Dosage: DOSE NOT PROVIDED
     Route: 065
     Dates: start: 20190205
  57. IDEOS [Concomitant]
     Active Substance: CALCIUM CARBONATE\CHOLECALCIFEROL
     Dosage: DOSE NOT PROVIDED
     Route: 048
     Dates: start: 20190314
  58. TORASEMID [Concomitant]
     Active Substance: TORSEMIDE
     Dosage: DOSE NOT PROVIDED
     Route: 065
     Dates: start: 20190404
  59. KALINOR [Concomitant]
     Dosage: DOSE NOT PROVIDED
     Route: 065
     Dates: start: 20190319
  60. MOVENTIG [Concomitant]
     Active Substance: NALOXEGOL OXALATE
     Dosage: DOSE NOT PROVIDED
     Route: 065
     Dates: start: 20190402
  61. VITAMIN B12 [Concomitant]
     Active Substance: CYANOCOBALAMIN
     Indication: PRODUCT USED FOR UNKNOWN INDICATION
     Dosage: DOSE NOT PROVIDED
     Route: 065
     Dates: start: 20190402
  62. CLEXANE [Concomitant]
     Active Substance: ENOXAPARIN SODIUM
     Dosage: DOSE NOT PROVIDED
     Route: 065
     Dates: start: 20190328
  63. LAXANS-RATIOPHARM PICO [Concomitant]
     Dosage: DOSE NOT PROVIDED
     Route: 065
     Dates: start: 20190227
  64. LAXANS-RATIOPHARM PICO [Concomitant]
     Dosage: DOSE NOT PROVIDED
     Route: 065
     Dates: start: 20190404
  65. ENALAPRIL [Concomitant]
     Active Substance: ENALAPRIL
     Indication: PRODUCT USED FOR UNKNOWN INDICATION
     Dosage: DOSE NOT PROVIDED
     Route: 065
     Dates: start: 20190115
  66. OXYCODONE HYDROCHLORIDE. [Concomitant]
     Active Substance: OXYCODONE HYDROCHLORIDE
     Dosage: DOSE NOT PROVIDED
     Route: 065
     Dates: start: 20190319
  67. AMOXICILLIN. [Concomitant]
     Active Substance: AMOXICILLIN
     Indication: PRODUCT USED FOR UNKNOWN INDICATION
     Dosage: DOSE NOT PROVIDED
     Route: 065
     Dates: start: 20190208
  68. MCP ABZ [Concomitant]
     Indication: PRODUCT USED FOR UNKNOWN INDICATION
     Dosage: DOSE NOT PROVIDED
     Route: 065
     Dates: start: 20190219
  69. DEXA OPTHAL [Concomitant]
     Indication: PRODUCT USED FOR UNKNOWN INDICATION
     Dosage: DOSE NOT PROVIDED
     Route: 047
     Dates: start: 20190222
  70. AMLODIPIN BESIL DEXCEL [Concomitant]
     Indication: PRODUCT USED FOR UNKNOWN INDICATION
     Dosage: DOSE NOT PROVIDED
     Route: 065
     Dates: start: 20190319

REACTIONS (1)
  - Myocardial infarction [Fatal]

NARRATIVE: CASE EVENT DATE: 20190406
